FAERS Safety Report 11044550 (Version 1)
Quarter: 2015Q2

REPORT INFORMATION
  Report Type: Report from Study
  Country: US (occurrence: US)
  Receive Date: 20150417
  Receipt Date: 20150417
  Transmission Date: 20150821
  Serious: Yes (Hospitalization)
  Sender: FDA-Public Use
  Company Number: US-SA-2014SA054162

PATIENT
  Age: 62 Year
  Sex: Female

DRUGS (1)
  1. AUBAGIO [Suspect]
     Active Substance: TERIFLUNOMIDE
     Indication: MULTIPLE SCLEROSIS
     Route: 048
     Dates: start: 20140408

REACTIONS (12)
  - Arachnoid cyst [Unknown]
  - Cognitive disorder [Unknown]
  - Vomiting [Recovered/Resolved]
  - Sinus congestion [Unknown]
  - Pruritus [Unknown]
  - Hypersomnia [Unknown]
  - Nasopharyngitis [Unknown]
  - Coma [Recovered/Resolved]
  - Weight decreased [Unknown]
  - Diarrhoea [Recovered/Resolved]
  - Nausea [Recovered/Resolved]
  - Underdose [Unknown]

NARRATIVE: CASE EVENT DATE: 201407
